FAERS Safety Report 13651316 (Version 1)
Quarter: 2017Q2

REPORT INFORMATION
  Report Type: Spontaneous
  Country: US (occurrence: US)
  Receive Date: 20170614
  Receipt Date: 20170614
  Transmission Date: 20170830
  Serious: No
  Sender: FDA-Public Use
  Company Number: US-PFIZER INC-2017260718

PATIENT
  Age: 63 Year
  Sex: Male
  Weight: 79.38 kg

DRUGS (1)
  1. ADVIL [Suspect]
     Active Substance: IBUPROFEN
     Indication: ARTHRITIS
     Dosage: 200MG TABLET AS NEEDED
     Dates: end: 20170607

REACTIONS (4)
  - Hypersensitivity [Unknown]
  - Rash [Recovering/Resolving]
  - Product quality issue [Unknown]
  - Poor quality drug administered [Unknown]
